FAERS Safety Report 6641906-2 (Version None)
Quarter: 2010Q1

REPORT INFORMATION
  Report Type: 
  Country: None (occurrence: None)
  Receive Date: 20100319
  Receipt Date: 20100310
  Transmission Date: 20100710
  Serious: Yes (Hospitalization)
  Sender: FDA-Public Use
  Company Number: US-JNJFOC-20100300617

PATIENT
  Sex: Male
  Weight: 34.2 kg

DRUGS (3)
  1. INFLIXIMAB [Suspect]
     Indication: INFLAMMATORY BOWEL DISEASE
     Route: 042
  2. ANTIBIOTICS [Concomitant]
     Indication: INFLAMMATORY BOWEL DISEASE
  3. PREDNISONE [Concomitant]

REACTIONS (1)
  - GASTROINTESTINAL HAEMORRHAGE [None]
